FAERS Safety Report 5688173-4 (Version None)
Quarter: 2008Q1

REPORT INFORMATION
  Report Type: 
  Country: None (occurrence: None)
  Receive Date: 20080327
  Receipt Date: 20080318
  Transmission Date: 20080703
  Serious: Yes (Life-Threatening)
  Sender: FDA-Public Use
  Company Number: GXKR2008PL02776

PATIENT
  Age: 54 Year
  Sex: Female
  Weight: 62 kg

DRUGS (1)
  1. ORTANOL (NGX)(OMEPRAZOLE) CAPSULE [Suspect]
     Indication: REFLUX OESOPHAGITIS
     Dosage: 20 MG, BID, ORAL
     Route: 048
     Dates: start: 20080130, end: 20080203

REACTIONS (1)
  - SUPRAVENTRICULAR TACHYCARDIA [None]
